FAERS Safety Report 6686879-1 (Version None)
Quarter: 2010Q2

REPORT INFORMATION
  Report Type: 
  Country: None (occurrence: None)
  Receive Date: 20100419
  Receipt Date: 20100408
  Transmission Date: 20101027
  Serious: Yes (Other)
  Sender: FDA-Public Use
  Company Number: CA-JNJFOC-20100204506

PATIENT
  Sex: Male
  Weight: 80.3 kg

DRUGS (8)
  1. STELARA [Suspect]
     Indication: PSORIASIS
     Route: 058
  2. ACETYLSALICYLIC ACID [Concomitant]
     Indication: CEREBROVASCULAR ACCIDENT
  3. ACETYLSALICYLIC ACID [Concomitant]
     Indication: TRANSIENT ISCHAEMIC ATTACK
  4. RAMIPRIL [Concomitant]
     Indication: HYPERTENSION
  5. ROSUVASTATIN [Concomitant]
     Indication: HYPERLIPIDAEMIA
  6. GLYBURIDE [Concomitant]
     Indication: DIABETES MELLITUS
  7. GLICLAZIDE [Concomitant]
     Indication: DIABETES MELLITUS
  8. NITROGLYCERIN [Concomitant]
     Indication: ANGINA PECTORIS

REACTIONS (1)
  - CEREBROVASCULAR ACCIDENT [None]
